FAERS Safety Report 7034312-2 (Version None)
Quarter: 2010Q4

REPORT INFORMATION
  Report Type: 
  Country: None (occurrence: None)
  Receive Date: 20101008
  Receipt Date: 20100927
  Transmission Date: 20110411
  Serious: No
  Sender: FDA-Public Use
  Company Number: CL-ELI_LILLY_AND_COMPANY-CL201009003507

PATIENT
  Age: 17 Year
  Sex: Male

DRUGS (2)
  1. ZYPREXA [Suspect]
     Indication: PERSONALITY DISORDER
     Dosage: 10 MG, UNKNOWN
     Route: 065
     Dates: start: 20100902
  2. RIVOTRIL [Concomitant]
     Indication: EMERGENCY CARE
     Dosage: UNK, AS NEEDED
     Route: 065

REACTIONS (2)
  - EPISTAXIS [None]
  - OFF LABEL USE [None]
